FAERS Safety Report 8964567 (Version 2)
Quarter: 2012Q4

REPORT INFORMATION
  Report Type: 
  Country: CA (occurrence: CA)
  Receive Date: 20121213
  Receipt Date: 20121217
  Transmission Date: 20130627
  Serious: Yes (Other)
  Sender: FDA-Public Use
  Company Number: CA-ROCHE-1163686

PATIENT
  Age: 61 Year
  Sex: Male

DRUGS (5)
  1. PEGASYS [Suspect]
     Indication: PRODUCT USED FOR UNKNOWN INDICATION
     Route: 058
     Dates: start: 20120917, end: 20121129
  2. RIBAVIRIN [Suspect]
     Indication: PRODUCT USED FOR UNKNOWN INDICATION
     Route: 048
     Dates: start: 20120917, end: 20121006
  3. RIBAVIRIN [Suspect]
     Route: 048
     Dates: start: 20121007, end: 201210
  4. RIBAVIRIN [Suspect]
     Route: 048
     Dates: start: 201210, end: 20121113
  5. RIBAVIRIN [Suspect]
     Route: 048
     Dates: start: 20121114, end: 20121129

REACTIONS (2)
  - Blood creatinine increased [Recovering/Resolving]
  - Haemoglobin decreased [Unknown]
